FAERS Safety Report 13967135 (Version 1)
Quarter: 2017Q3

REPORT INFORMATION
  Report Type: Spontaneous
  Country: US (occurrence: None)
  Receive Date: 20170908
  Receipt Date: 20170908
  Transmission Date: 20171128
  Serious: Yes (Hospitalization)
  Sender: FDA-Public Use
  Company Number: None

PATIENT
  Age: 75 Year
  Sex: Male
  Weight: 89.77 kg

DRUGS (1)
  1. SOTALOL. [Suspect]
     Active Substance: SOTALOL
     Indication: ATRIAL FIBRILLATION
     Route: 048
     Dates: start: 20121220, end: 20170520

REACTIONS (4)
  - Atrial fibrillation [None]
  - Dyspnoea [None]
  - Fatigue [None]
  - Palpitations [None]

NARRATIVE: CASE EVENT DATE: 20170520
